FAERS Safety Report 7698963-4 (Version None)
Quarter: 2011Q3

REPORT INFORMATION
  Report Type: 
  Country: None (occurrence: None)
  Receive Date: 20110819
  Receipt Date: 20110815
  Transmission Date: 20111222
  Serious: Yes (Hospitalization, Other)
  Sender: FDA-Public Use
  Company Number: US-ELI_LILLY_AND_COMPANY-US200910005442

PATIENT
  Sex: Female

DRUGS (8)
  1. GLUCOPHAGE [Concomitant]
     Indication: DIABETES MELLITUS
  2. MAALOX [Concomitant]
  3. LANTUS [Concomitant]
     Indication: DIABETES MELLITUS
  4. TYLENOL (CAPLET) [Concomitant]
     Indication: HEADACHE
  5. AVAPRO [Concomitant]
     Indication: BLOOD PRESSURE
  6. BYETTA [Suspect]
     Dosage: UNK, UNKNOWN
     Route: 065
  7. LIPITOR [Concomitant]
     Indication: LIPIDS INCREASED
  8. ACTOS [Concomitant]
     Indication: DIABETES MELLITUS

REACTIONS (2)
  - OFF LABEL USE [None]
  - RENAL FAILURE [None]
